FAERS Safety Report 25438268 (Version 1)
Quarter: 2025Q2

REPORT INFORMATION
  Report Type: Spontaneous
  Country: US (occurrence: US)
  Receive Date: 20250616
  Receipt Date: 20250616
  Transmission Date: 20250716
  Serious: Yes (Hospitalization, Other)
  Sender: NOVO NORDISK
  Company Number: US-NOVOPROD-1453462

PATIENT
  Age: 61 Year
  Sex: Female

DRUGS (3)
  1. OZEMPIC [Suspect]
     Active Substance: SEMAGLUTIDE
     Indication: Type 2 diabetes mellitus
     Dosage: 2 MG, QD
     Dates: start: 20241207, end: 20250419
  2. OZEMPIC [Suspect]
     Active Substance: SEMAGLUTIDE
     Indication: Weight control
  3. INSULIN NOS [Concomitant]
     Active Substance: INSULIN NOS
     Indication: Type 2 diabetes mellitus

REACTIONS (11)
  - Patella fracture [Unknown]
  - Feeling abnormal [Unknown]
  - Hallucination [Unknown]
  - Fall [Unknown]
  - Diarrhoea [Recovered/Resolved]
  - Accident at work [Unknown]
  - Road traffic accident [Unknown]
  - Toxicity to various agents [Unknown]
  - Cognitive disorder [Unknown]
  - Dehydration [Unknown]
  - Renal impairment [Unknown]

NARRATIVE: CASE EVENT DATE: 20250401
